FAERS Safety Report 13471881 (Version 1)
Quarter: 2017Q2

REPORT INFORMATION
  Report Type: Spontaneous
  Country: FR (occurrence: FR)
  Receive Date: 20170424
  Receipt Date: 20170424
  Transmission Date: 20170830
  Serious: Yes (Other)
  Sender: FDA-Public Use
  Company Number: FR-THE MEDICINES COMPANY-FR-MDCO-17-00152

PATIENT
  Age: 83 Year
  Sex: Male

DRUGS (8)
  1. REOPRO [Suspect]
     Active Substance: ABCIXIMAB
     Indication: ARTERIOGRAM CORONARY
     Dosage: NOT REPORTED
     Route: 040
     Dates: start: 20170324
  2. ISOPTINE [Concomitant]
     Active Substance: VERAPAMIL HYDROCHLORIDE
     Indication: PRODUCT USED FOR UNKNOWN INDICATION
     Dosage: NOT REPORTED
  3. KRENOSIN [Concomitant]
     Active Substance: ADENOSINE
     Indication: PRODUCT USED FOR UNKNOWN INDICATION
     Dosage: NOT REPORTED
  4. ANGIOX [Suspect]
     Active Substance: BIVALIRUDIN
     Dosage: NOT REPORTED
     Route: 041
     Dates: start: 20170324
  5. ANGIOX [Suspect]
     Active Substance: BIVALIRUDIN
     Indication: ACUTE CORONARY SYNDROME
     Dosage: NOT REPORTED
     Route: 040
     Dates: start: 20170324, end: 20170324
  6. RISORDAN [Concomitant]
     Active Substance: ISOSORBIDE DINITRATE
     Indication: PRODUCT USED FOR UNKNOWN INDICATION
     Dosage: NOT REPORTED
  7. NORADR [Concomitant]
     Indication: PRODUCT USED FOR UNKNOWN INDICATION
     Dosage: NOT REPORTED
  8. SERTRALINE [Suspect]
     Active Substance: SERTRALINE HYDROCHLORIDE
     Indication: DEPRESSION
     Dosage: NOT REPORTED
     Route: 048
     Dates: end: 20170323

REACTIONS (5)
  - Mallory-Weiss syndrome [Unknown]
  - Anaemia [Recovered/Resolved]
  - Gingival bleeding [Unknown]
  - Oesophageal ulcer haemorrhage [Recovered/Resolved]
  - Thrombocytopenia [Unknown]

NARRATIVE: CASE EVENT DATE: 201703
